FAERS Safety Report 15225022 (Version 2)
Quarter: 2018Q4

REPORT INFORMATION
  Report Type: Report from Study
  Country: None (occurrence: US)
  Receive Date: 20180801
  Receipt Date: 20181023
  Transmission Date: 20190204
  Serious: Yes (Death, Hospitalization, Other)
  Sender: FDA-Public Use
  Company Number: US-ABBVIE-18K-163-2390643-00

PATIENT
  Age: 78 Year
  Sex: Male
  Weight: 104.05 kg

DRUGS (5)
  1. VENCLEXTA [Suspect]
     Active Substance: VENETOCLAX
     Route: 048
     Dates: start: 20180707, end: 20180726
  2. ALLOPURINOL. [Concomitant]
     Active Substance: ALLOPURINOL
     Indication: PRODUCT USED FOR UNKNOWN INDICATION
  3. VENCLEXTA [Suspect]
     Active Substance: VENETOCLAX
     Indication: ACUTE MYELOID LEUKAEMIA
     Dosage: 4 TABLETS EACH DAY,
     Route: 048
     Dates: start: 20180705, end: 20180705
  4. VIDAZA [Suspect]
     Active Substance: AZACITIDINE
     Indication: PRODUCT USED FOR UNKNOWN INDICATION
     Route: 042
  5. VENCLEXTA [Suspect]
     Active Substance: VENETOCLAX
     Indication: REMISSION NOT ACHIEVED
     Route: 048
     Dates: start: 20180706, end: 20180706

REACTIONS (12)
  - Hypotension [Recovered/Resolved]
  - Heart rate increased [Recovered/Resolved]
  - Febrile neutropenia [Unknown]
  - Confusional state [Unknown]
  - Pneumonia [Unknown]
  - Intentional product use issue [Unknown]
  - Diarrhoea [Recovered/Resolved]
  - Death [Fatal]
  - Acute myeloid leukaemia [Unknown]
  - Asthenia [Not Recovered/Not Resolved]
  - Hypoxia [Unknown]
  - Dysstasia [Recovered/Resolved]

NARRATIVE: CASE EVENT DATE: 201807
